FAERS Safety Report 7388054-4 (Version None)
Quarter: 2011Q2

REPORT INFORMATION
  Report Type: 
  Country: None (occurrence: None)
  Receive Date: 20110401
  Receipt Date: 20110329
  Transmission Date: 20111010
  Serious: No
  Sender: FDA-Public Use
  Company Number: US-PFIZER INC-2011070315

PATIENT
  Sex: Female

DRUGS (1)
  1. PRISTIQ [Suspect]
     Indication: DEPRESSION
     Dosage: 100 MG, 1X/DAY
     Route: 048

REACTIONS (2)
  - DIZZINESS [None]
  - WITHDRAWAL SYNDROME [None]
